FAERS Safety Report 24587092 (Version 1)
Quarter: 2024Q4

REPORT INFORMATION
  Report Type: Spontaneous
  Country: US (occurrence: None)
  Receive Date: 20241107
  Receipt Date: 20241107
  Transmission Date: 20250115
  Serious: No
  Sender: UNICHEM
  Company Number: US-ARIS GLOBAL-UCM202404-000402

PATIENT
  Age: 80 Year
  Sex: Female
  Weight: 63 kg

DRUGS (3)
  1. LAMOTRIGINE [Suspect]
     Active Substance: LAMOTRIGINE
     Indication: Panic attack
     Dates: start: 20240312
  2. LAMOTRIGINE [Suspect]
     Active Substance: LAMOTRIGINE
  3. LAMOTRIGINE [Suspect]
     Active Substance: LAMOTRIGINE

REACTIONS (15)
  - Balance disorder [Unknown]
  - Pain in extremity [Unknown]
  - Headache [Unknown]
  - Photophobia [Not Recovered/Not Resolved]
  - Dizziness [Unknown]
  - Fatigue [Unknown]
  - Tremor [Unknown]
  - Insomnia [Unknown]
  - Dry mouth [Unknown]
  - Throat irritation [Unknown]
  - Gait disturbance [Unknown]
  - Visual impairment [Unknown]
  - Bursitis [Unknown]
  - Musculoskeletal stiffness [Not Recovered/Not Resolved]
  - Product use in unapproved indication [Unknown]

NARRATIVE: CASE EVENT DATE: 20240312
